FAERS Safety Report 5629127-3 (Version None)
Quarter: 2008Q1

REPORT INFORMATION
  Report Type: 
  Country: None (occurrence: None)
  Receive Date: 20080216
  Receipt Date: 20080125
  Transmission Date: 20080703
  Serious: No
  Sender: FDA-Public Use
  Company Number: US-BAXTER-2008BH000885

PATIENT
  Age: 45 Year
  Sex: Male
  Weight: 74 kg

DRUGS (7)
  1. HEPARIN SODIUM [Suspect]
     Indication: PROPHYLAXIS
     Dosage: DOSE UNIT:CUBIC CENTIMETER
     Route: 033
     Dates: end: 20080125
  2. NORVASC [Concomitant]
     Indication: BLOOD PRESSURE
     Route: 048
     Dates: start: 19960101
  3. XANAX [Concomitant]
     Indication: ANXIETY
     Route: 048
     Dates: start: 19910101
  4. CLONIDINE [Concomitant]
     Indication: BLOOD PRESSURE
     Route: 048
     Dates: start: 19960101
  5. CARDURA                                 /IRE/ [Concomitant]
     Indication: BLOOD PRESSURE
     Route: 048
  6. PREDNISONE TAB [Concomitant]
     Indication: PAIN
     Route: 048
     Dates: start: 19960101
  7. FOSRENAL [Concomitant]
     Indication: BLOOD PHOSPHORUS
     Dosage: DOSE UNIT:UNKNOWN
     Route: 048
     Dates: start: 20000101

REACTIONS (5)
  - ABDOMINAL PAIN UPPER [None]
  - BONE PAIN [None]
  - CONJUNCTIVITIS [None]
  - DIARRHOEA [None]
  - SKIN BURNING SENSATION [None]
